FAERS Safety Report 11689214 (Version 2)
Quarter: 2015Q4

REPORT INFORMATION
  Report Type: Spontaneous
  Country: BE (occurrence: BE)
  Receive Date: 20151102
  Receipt Date: 20151221
  Transmission Date: 20160304
  Serious: Yes (Other)
  Sender: FDA-Public Use
  Company Number: BE-ASTELLAS-2015US039076

PATIENT
  Age: 15 Year
  Sex: Male

DRUGS (1)
  1. AMBISOME [Suspect]
     Active Substance: AMPHOTERICIN B
     Indication: PRODUCT USED FOR UNKNOWN INDICATION
     Route: 065
     Dates: start: 20150831, end: 20150831

REACTIONS (6)
  - Swelling face [Unknown]
  - Tachypnoea [Unknown]
  - Product quality issue [Unknown]
  - Tachycardia [Unknown]
  - Dyspnoea [Unknown]
  - Oxygen saturation abnormal [Recovered/Resolved]

NARRATIVE: CASE EVENT DATE: 20150831
